FAERS Safety Report 25646414 (Version 1)
Quarter: 2025Q3

REPORT INFORMATION
  Report Type: Spontaneous
  Country: US (occurrence: US)
  Receive Date: 20250805
  Receipt Date: 20250805
  Transmission Date: 20251020
  Serious: Yes (Hospitalization, Other)
  Sender: DR REDDYS
  Company Number: US-DRL-USA-USA/2025/07/011755

PATIENT
  Age: 60 Year
  Sex: Male

DRUGS (2)
  1. DAPTOMYCIN [Suspect]
     Active Substance: DAPTOMYCIN
     Indication: Osteomyelitis
     Dosage: 650 MILLIGRAMS DAILY
  2. ERTAPENEM [Concomitant]
     Active Substance: ERTAPENEM
     Indication: Osteomyelitis

REACTIONS (2)
  - Eosinophilic pneumonia acute [Unknown]
  - Product use in unapproved indication [Unknown]
